FAERS Safety Report 14124080 (Version 1)
Quarter: 2017Q4

REPORT INFORMATION
  Report Type: Spontaneous
  Country: US (occurrence: US)
  Receive Date: 20171025
  Receipt Date: 20171025
  Transmission Date: 20180321
  Serious: Yes (Hospitalization)
  Sender: FDA-Public Use
  Company Number: US-REGULIS-2031367

PATIENT
  Age: 58 Year
  Sex: Female

DRUGS (18)
  1. NIFEDIPINE EXTENDED-RELEASE [Concomitant]
     Active Substance: NIFEDIPINE
     Route: 048
  2. NIFEDIPINE EXTENDED-RELEASE [Concomitant]
     Active Substance: NIFEDIPINE
     Route: 048
  3. IFOSFAMIDE. [Concomitant]
     Active Substance: IFOSFAMIDE
     Route: 042
  4. MENSA [Concomitant]
     Route: 042
  5. THIAMINE. [Concomitant]
     Active Substance: THIAMINE
     Route: 048
  6. BISACODYL. [Concomitant]
     Active Substance: BISACODYL
     Route: 048
  7. CLONIDINE. [Concomitant]
     Active Substance: CLONIDINE
     Route: 048
  8. METOCLOPRAMIDE. [Concomitant]
     Active Substance: METOCLOPRAMIDE
     Route: 048
  9. OXYCODONE ER [Concomitant]
     Active Substance: OXYCODONE
     Route: 048
  10. ADRIAMYCIN [Concomitant]
     Active Substance: DOXORUBICIN HYDROCHLORIDE
     Route: 042
  11. THIAMINE. [Concomitant]
     Active Substance: THIAMINE
     Route: 042
  12. METHYLENE BLUE. [Suspect]
     Active Substance: METHYLENE BLUE
     Indication: NERVOUS SYSTEM DISORDER
     Route: 042
  13. DOCUSATE PLUS SENNA [Concomitant]
     Active Substance: DOCUSATE SODIUM\SENNOSIDES A AND B
     Route: 048
  14. LOSARTAN. [Concomitant]
     Active Substance: LOSARTAN
     Route: 048
  15. ONDANSETRON [Concomitant]
     Active Substance: ONDANSETRON
     Route: 042
  16. DEXAMETHASONE. [Concomitant]
     Active Substance: DEXAMETHASONE
     Route: 048
  17. FLUCONAZOLE. [Concomitant]
     Active Substance: FLUCONAZOLE
     Route: 048
  18. PAROXETINE. [Concomitant]
     Active Substance: PAROXETINE
     Route: 048

REACTIONS (2)
  - Serotonin syndrome [Recovered/Resolved]
  - Off label use [Unknown]
